FAERS Safety Report 9602722 (Version 1)
Quarter: 2013Q4

REPORT INFORMATION
  Report Type: Spontaneous
  Country: CN (occurrence: CN)
  Receive Date: 20131007
  Receipt Date: 20131007
  Transmission Date: 20140711
  Serious: Yes (Death)
  Sender: FDA-Public Use
  Company Number: CN-CELGENEUS-035-21880-13094188

PATIENT
  Age: 71 Year
  Sex: Female
  Weight: 47 kg

DRUGS (3)
  1. REVLIMID [Suspect]
     Indication: PLASMA CELL MYELOMA
     Dosage: 10 MILLIGRAM
     Route: 048
     Dates: start: 20130703, end: 20130924
  2. DEXAMETHASONE [Concomitant]
     Indication: PLASMA CELL MYELOMA
     Dosage: 10 MILLIGRAM
     Route: 041
     Dates: start: 20130703, end: 20130924
  3. ANTI-INFECTIVE [Concomitant]
     Indication: FULL BLOOD COUNT DECREASED
     Route: 065

REACTIONS (2)
  - Lung infection [Fatal]
  - Plasma cell myeloma [Fatal]
